FAERS Safety Report 9759295 (Version 1)
Quarter: 2013Q4

REPORT INFORMATION
  Report Type: Spontaneous
  Country: US (occurrence: None)
  Receive Date: 20131216
  Receipt Date: 20131216
  Transmission Date: 20140711
  Serious: Yes (Other)
  Sender: FDA-Public Use
  Company Number: 163-21880-12052282 (0)

PATIENT
  Age: 84 Year
  Sex: Female
  Weight: 52 kg

DRUGS (1)
  1. REVLIMID [Suspect]
     Dosage: 10 MG, DAILY FOR 21 DAYS, OFF 7 DAYS, PO ?10 MG, DAILY FOR 21 DAYS, OFF 7 DAYS, PO ?10 MG, 21 IN 28

REACTIONS (3)
  - Asthenia [None]
  - Diarrhoea [None]
  - Fatigue [None]
